FAERS Safety Report 4296384-8 (Version None)
Quarter: 2004Q1

REPORT INFORMATION
  Report Type: 
  Country: None (occurrence: None)
  Receive Date: 20040212
  Receipt Date: 20040209
  Transmission Date: 20041129
  Serious: Yes (Death, Hospitalization)
  Sender: FDA-Public Use
  Company Number: MSTR-NO-0402L-0001

PATIENT
  Age: 76 Year
  Sex: Male

DRUGS (3)
  1. METASTRON [Suspect]
     Indication: ANALGESIC EFFECT
     Dosage: 150 MBQ, I.V.
     Route: 042
     Dates: start: 19980201, end: 19980201
  2. METASTRON [Suspect]
     Indication: ANALGESIC EFFECT
     Dosage: 150 MBQ, I.V.
     Route: 042
     Dates: start: 20010401, end: 20010401
  3. METASTRON [Suspect]
     Indication: ANALGESIC EFFECT
     Dosage: 150 MBQ, I.V.
     Route: 042
     Dates: start: 20011101, end: 20011101

REACTIONS (5)
  - ACUTE MONOCYTIC LEUKAEMIA [None]
  - DEPRESSED LEVEL OF CONSCIOUSNESS [None]
  - GENERAL PHYSICAL HEALTH DETERIORATION [None]
  - NERVOUS SYSTEM DISORDER [None]
  - PANCYTOPENIA [None]
